FAERS Safety Report 25005206 (Version 1)
Quarter: 2025Q1

REPORT INFORMATION
  Report Type: Report from Study
  Country: CA (occurrence: CA)
  Receive Date: 20250224
  Receipt Date: 20250224
  Transmission Date: 20250409
  Serious: Yes (Other)
  Sender: OTSUKA
  Company Number: CA-MMM-Otsuka-03OAV1WD

PATIENT
  Sex: Male

DRUGS (2)
  1. TOLVAPTAN [Suspect]
     Active Substance: TOLVAPTAN
     Indication: Congenital cystic kidney disease
     Route: 048
     Dates: start: 20190903, end: 20241204
  2. TOLVAPTAN [Suspect]
     Active Substance: TOLVAPTAN
     Route: 048
     Dates: start: 20190903, end: 20241204

REACTIONS (1)
  - Renal replacement therapy [Unknown]
